FAERS Safety Report 7894133-5 (Version None)
Quarter: 2011Q4

REPORT INFORMATION
  Report Type: 
  Country: None (occurrence: None)
  Receive Date: 20111104
  Receipt Date: 20111028
  Transmission Date: 20120403
  Serious: Yes (Death, Other)
  Sender: FDA-Public Use
  Company Number: US-AMGEN-US353762

PATIENT
  Age: 84 Year
  Sex: Female
  Weight: 47.691 kg

DRUGS (5)
  1. NPLATE [Suspect]
     Dosage: 100 MUG, QWK
     Route: 058
     Dates: start: 20090423
  2. NPLATE [Suspect]
     Dosage: 80 MUG
     Route: 058
     Dates: start: 20090414
  3. PREDNISONE [Concomitant]
     Dosage: 100 MG, QD
     Route: 048
     Dates: start: 20080101
  4. NPLATE [Suspect]
     Indication: IDIOPATHIC THROMBOCYTOPENIC PURPURA
     Dosage: 100 MUG, QWK
     Route: 058
     Dates: end: 20090428
  5. NPLATE [Suspect]
     Dosage: 50 MUG, QWK
     Route: 058
     Dates: start: 20090414

REACTIONS (6)
  - LEUKOCYTOSIS [None]
  - NUCLEATED RED CELLS [None]
  - HAEMOLYTIC ANAEMIA [None]
  - UROSEPSIS [None]
  - SEPTIC SHOCK [None]
  - THROMBOCYTOPENIA [None]
